FAERS Safety Report 4465076-4 (Version None)
Quarter: 2004Q3

REPORT INFORMATION
  Report Type: 
  Country: None (occurrence: None)
  Receive Date: 20040928
  Receipt Date: 20040928
  Transmission Date: 20050211
  Serious: Yes (Hospitalization)
  Sender: FDA-Public Use
  Company Number: None

PATIENT
  Sex: Male

DRUGS (13)
  1. CLOZAPINE [Suspect]
  2. WARFARIN SODIUM [Concomitant]
  3. TRAZODONE HCL [Concomitant]
  4. NIACIN [Concomitant]
  5. METOPROLOL [Concomitant]
  6. LISINOPRIL [Concomitant]
  7. GLYBURIDE [Concomitant]
  8. FUROSEMIDE [Concomitant]
  9. FELODIPINE [Concomitant]
  10. DOSUCSATE [Concomitant]
  11. DIGOXIN [Concomitant]
  12. COMBIVENT [Concomitant]
  13. GUALIFENESIN [Concomitant]

REACTIONS (2)
  - MEDICATION ERROR [None]
  - MENTAL STATUS CHANGES [None]
